FAERS Safety Report 18681686 (Version 1)
Quarter: 2020Q4

REPORT INFORMATION
  Report Type: Report from Study
  Country: US (occurrence: US)
  Receive Date: 20201229
  Receipt Date: 20201229
  Transmission Date: 20210114
  Serious: Yes (Other)
  Sender: FDA-Public Use
  Company Number: US-BEH-2020122134

PATIENT
  Age: 61 Year
  Sex: Female

DRUGS (2)
  1. HIZENTRA [Suspect]
     Active Substance: HUMAN IMMUNOGLOBULIN G
     Dosage: UNK
     Route: 065
  2. ZETIA [Concomitant]
     Active Substance: EZETIMIBE

REACTIONS (9)
  - Hepatic steatosis [Unknown]
  - Fatigue [Unknown]
  - Frustration tolerance decreased [Not Recovered/Not Resolved]
  - Economic problem [Unknown]
  - Inflammation [Unknown]
  - No adverse event [Unknown]
  - Cyst [Unknown]
  - Therapy interrupted [Unknown]
  - Insurance issue [Unknown]

NARRATIVE: CASE EVENT DATE: 202008
